FAERS Safety Report 7513012-6 (Version None)
Quarter: 2011Q2

REPORT INFORMATION
  Report Type: 
  Country: None (occurrence: None)
  Receive Date: 20110525
  Receipt Date: 20110525
  Transmission Date: 20111010
  Serious: No
  Sender: FDA-Public Use
  Company Number: None

PATIENT
  Age: 74 Year
  Sex: Male
  Weight: 85.7298 kg

DRUGS (1)
  1. ANDRODERM [Suspect]
     Indication: TESTICULAR FAILURE
     Dates: start: 20110501, end: 20110514

REACTIONS (1)
  - APPLICATION SITE IRRITATION [None]
